FAERS Safety Report 5288220-8 (Version None)
Quarter: 2007Q2

REPORT INFORMATION
  Report Type: 
  Country: None (occurrence: None)
  Receive Date: 20070405
  Receipt Date: 20070328
  Transmission Date: 20071010
  Serious: Yes (Other)
  Sender: FDA-Public Use
  Company Number: US-JNJFOC-20070306830

PATIENT
  Age: 55 Year
  Sex: Female
  Weight: 83.92 kg

DRUGS (4)
  1. RENOVA [Suspect]
     Indication: SKIN DISCOLOURATION
     Route: 061
     Dates: start: 20070223, end: 20070323
  2. TOPROL-XL [Concomitant]
     Route: 065
  3. SYNTHROID [Concomitant]
     Route: 065
  4. ATACAND [Concomitant]
     Route: 065

REACTIONS (1)
  - BURNS FIRST DEGREE [None]
